FAERS Safety Report 18722661 (Version 1)
Quarter: 2021Q1

REPORT INFORMATION
  Report Type: Spontaneous
  Country: US (occurrence: US)
  Receive Date: 20210111
  Receipt Date: 20210111
  Transmission Date: 20210419
  Serious: No
  Sender: FDA-Public Use
  Company Number: NVSC2020US348481

PATIENT
  Age: 53 Year
  Sex: Female
  Weight: 73.47 kg

DRUGS (4)
  1. COMBIPATCH [Suspect]
     Active Substance: ESTRADIOL\NORETHINDRONE ACETATE
     Indication: MENOPAUSAL SYMPTOMS
     Dosage: 0.05/0.14MG QD
     Route: 062
     Dates: start: 202010
  2. SYNTHROID [Concomitant]
     Active Substance: LEVOTHYROXINE SODIUM
     Indication: PRODUCT USED FOR UNKNOWN INDICATION
     Dosage: UNK
     Route: 065
  3. COMBIPATCH [Suspect]
     Active Substance: ESTRADIOL\NORETHINDRONE ACETATE
     Dosage: 0.05/0.14MG QD (ONE PATCH EVERY 3?4 DAYS)
     Route: 062
     Dates: start: 202012, end: 202012
  4. SIMVASTATIN. [Concomitant]
     Active Substance: SIMVASTATIN
     Indication: BLOOD CHOLESTEROL
     Dosage: UNK
     Route: 065

REACTIONS (4)
  - Application site erythema [Unknown]
  - Application site swelling [Unknown]
  - Product administered at inappropriate site [Not Recovered/Not Resolved]
  - Application site pruritus [Unknown]

NARRATIVE: CASE EVENT DATE: 202010
